FAERS Safety Report 17011593 (Version 2)
Quarter: 2019Q4

REPORT INFORMATION
  Report Type: Report from Study
  Country: CA (occurrence: CA)
  Receive Date: 20191108
  Receipt Date: 20191226
  Transmission Date: 20200122
  Serious: Yes (Other)
  Sender: FDA-Public Use
  Company Number: CA-JNJFOC-20191101922

PATIENT
  Sex: Female
  Weight: 68.04 kg

DRUGS (3)
  1. REMICADE [Suspect]
     Active Substance: INFLIXIMAB
     Route: 042
     Dates: start: 20151125, end: 20190918
  2. REMICADE [Suspect]
     Active Substance: INFLIXIMAB
     Indication: COLITIS ULCERATIVE
     Route: 042
     Dates: start: 20151125, end: 20190918
  3. IMURAN [Concomitant]
     Active Substance: AZATHIOPRINE
     Indication: IMMUNOSUPPRESSANT DRUG THERAPY
     Dosage: STRENGTH = 50 MG
     Route: 048
     Dates: start: 20150601

REACTIONS (1)
  - Breast cancer stage III [Unknown]
